FAERS Safety Report 5852320-1 (Version None)
Quarter: 2008Q3

REPORT INFORMATION
  Report Type: 
  Country: None (occurrence: None)
  Receive Date: 20080821
  Receipt Date: 20080812
  Transmission Date: 20090109
  Serious: Yes (Hospitalization, Other)
  Sender: FDA-Public Use
  Company Number: PHBS2008NL05410

PATIENT
  Age: 19 Year
  Sex: Male

DRUGS (1)
  1. BACLOFEN [Suspect]
     Indication: MUSCLE SPASTICITY
     Dosage: UNK
     Route: 065

REACTIONS (5)
  - APPLICATION SITE INFECTION [None]
  - ARTHRITIS [None]
  - DRUG INEFFECTIVE [None]
  - RADICULOTOMY [None]
  - URINARY TRACT INFECTION [None]
